FAERS Safety Report 5007761-1 (Version None)
Quarter: 2006Q2

REPORT INFORMATION
  Report Type: 
  Country: None (occurrence: None)
  Receive Date: 20060522
  Receipt Date: 20060130
  Transmission Date: 20061013
  Serious: Yes (Other)
  Sender: FDA-Public Use
  Company Number: US-GLAXOSMITHKLINE-A0591900A

PATIENT
  Age: 23 Year
  Sex: Male

DRUGS (7)
  1. REQUIP [Suspect]
     Indication: RESTLESS LEGS SYNDROME
     Dosage: 1MG PER DAY
     Route: 048
     Dates: start: 20051001
  2. LEXAPRO [Concomitant]
     Indication: ANXIETY
     Dosage: 20MG TWICE PER DAY
     Dates: start: 20030101
  3. RISPERDAL [Concomitant]
  4. WELLBUTRIN XL [Concomitant]
     Indication: DEPRESSION
     Dosage: 300MG IN THE MORNING
     Dates: start: 20050201
  5. PRILOSEC [Concomitant]
     Dosage: 40MG PER DAY
     Dates: start: 20050801
  6. ADDERALL XR 10 [Concomitant]
     Indication: ATTENTION DEFICIT/HYPERACTIVITY DISORDER
     Dosage: 60MG IN THE MORNING
     Dates: start: 20030101
  7. ADDERALL 10 [Concomitant]
     Indication: ATTENTION DEFICIT/HYPERACTIVITY DISORDER
     Dosage: 20MG PER DAY
     Dates: start: 20010101

REACTIONS (2)
  - LOSS OF CONSCIOUSNESS [None]
  - ROAD TRAFFIC ACCIDENT [None]
